FAERS Safety Report 6147876-8 (Version None)
Quarter: 2009Q2

REPORT INFORMATION
  Report Type: 
  Country: None (occurrence: None)
  Receive Date: 20090408
  Receipt Date: 20090402
  Transmission Date: 20091009
  Serious: Yes (Disabling, Other)
  Sender: FDA-Public Use
  Company Number: US-PFIZER INC-2009193466

PATIENT
  Sex: Male
  Weight: 86.182 kg

DRUGS (5)
  1. AMLODIPINE BESYLATE [Suspect]
     Indication: HYPERTENSION
     Dosage: 5 MG, 2X/DAY
  2. AMLODIPINE BESYLATE [Suspect]
     Dosage: UNKNOWN
  3. LIPITOR [Suspect]
  4. CLOPIDOGREL [Concomitant]
     Dosage: 75 MG, UNK
  5. ATENOLOL [Concomitant]
     Dosage: UNK

REACTIONS (7)
  - JOINT DESTRUCTION [None]
  - MUSCLE DISORDER [None]
  - PURPURA [None]
  - RASH [None]
  - SKIN DISORDER [None]
  - SKIN HAEMORRHAGE [None]
  - THERAPEUTIC RESPONSE UNEXPECTED WITH DRUG SUBSTITUTION [None]
